FAERS Safety Report 7402621-0 (Version None)
Quarter: 2011Q1

REPORT INFORMATION
  Report Type: 
  Country: None (occurrence: None)
  Receive Date: 20110331
  Receipt Date: 20110321
  Transmission Date: 20110831
  Serious: Yes (Other)
  Sender: FDA-Public Use
  Company Number: 2010000010

PATIENT
  Age: 60 Year
  Sex: Male

DRUGS (6)
  1. AVASTIN [Suspect]
     Indication: PRODUCT USED FOR UNKNOWN INDICATION
     Dosage: 1130 MG, QD, SUBCUTANEOUS
     Route: 058
     Dates: start: 20081124, end: 20090429
  2. TAXOTERE [Suspect]
     Indication: PRODUCT USED FOR UNKNOWN INDICATION
     Dosage: 145 MG, QD, INTRAVENOUS
     Route: 042
     Dates: start: 20081124, end: 20090429
  3. TRANDOLAPRIL [Concomitant]
  4. CISPLATIN [Suspect]
     Indication: PRODUCT USED FOR UNKNOWN INDICATION
     Dosage: 45 MG, QD, SUBCUTANEOUS
     Route: 058
     Dates: start: 20081124, end: 20090429
  5. TARCEVA [Suspect]
     Indication: PRODUCT USED FOR UNKNOWN INDICATION
     Dosage: ORAL
     Route: 048
     Dates: start: 20090528
  6. NEULASTA [Suspect]
     Indication: PRODUCT USED FOR UNKNOWN INDICATION
     Dosage: 6 MG, QD, SUBCUTANEOUS
     Route: 058
     Dates: start: 20081124, end: 20090429

REACTIONS (2)
  - EJECTION FRACTION DECREASED [None]
  - DILATATION VENTRICULAR [None]
